FAERS Safety Report 6756384-2 (Version None)
Quarter: 2010Q2

REPORT INFORMATION
  Report Type: 
  Country: None (occurrence: None)
  Receive Date: 20100604
  Receipt Date: 20100602
  Transmission Date: 20101027
  Serious: Yes (Hospitalization)
  Sender: FDA-Public Use
  Company Number: AT-ROCHE-706950

PATIENT
  Sex: Male

DRUGS (3)
  1. PEGASYS [Suspect]
     Route: 058
     Dates: start: 20090710
  2. COPEGUS [Suspect]
     Route: 048
     Dates: start: 20090710
  3. HALCION [Concomitant]
     Indication: INSOMNIA
     Route: 048
     Dates: start: 20091105, end: 20100509

REACTIONS (1)
  - EPILEPSY [None]
